FAERS Safety Report 7155841-7 (Version None)
Quarter: 2010Q4

REPORT INFORMATION
  Report Type: 
  Country: None (occurrence: None)
  Receive Date: 20101214
  Receipt Date: 20101202
  Transmission Date: 20110411
  Serious: Yes (Death)
  Sender: FDA-Public Use
  Company Number: PT-JNJFOC-20101202232

PATIENT
  Age: 47 Year
  Sex: Male

DRUGS (3)
  1. REMICADE [Suspect]
     Indication: CROHN'S DISEASE
     Dosage: INFUSIONS 1-2
     Route: 042
  2. REMICADE [Suspect]
     Dosage: 4TH INFUSION
     Route: 042
  3. REMICADE [Suspect]
     Dosage: 3RD INFUSION
     Route: 042

REACTIONS (1)
  - COLON CANCER [None]
